FAERS Safety Report 17529138 (Version 1)
Quarter: 2020Q1

REPORT INFORMATION
  Report Type: Report from Study
  Country: None (occurrence: US)
  Receive Date: 20200311
  Receipt Date: 20200311
  Transmission Date: 20200409
  Serious: Yes (Death)
  Sender: FDA-Public Use
  Company Number: US-ABBVIE-20K-163-3313703-00

PATIENT
  Age: 85 Year
  Sex: Male

DRUGS (5)
  1. CALQUENCE [Concomitant]
     Active Substance: ACALABRUTINIB
     Indication: PRODUCT USED FOR UNKNOWN INDICATION
  2. VENCLEXTA [Suspect]
     Active Substance: VENETOCLAX
     Dosage: TOOK 50 MG TABLET DAILY WEEK 2
     Route: 048
  3. VENCLEXTA [Suspect]
     Active Substance: VENETOCLAX
     Dosage: TOOK 1- 100 MG TABLET DAILY WEEK 3
     Route: 048
  4. VENCLEXTA [Suspect]
     Active Substance: VENETOCLAX
     Dosage: TOOK 2-100 MG TABLET DAILY WEEK 4
     Route: 048
  5. VENCLEXTA [Suspect]
     Active Substance: VENETOCLAX
     Indication: CHRONIC LYMPHOCYTIC LEUKAEMIA
     Dosage: TOOK 2- 10 MG TABLET DAILY BY MOUTH WEEK ONE
     Route: 048

REACTIONS (1)
  - Death [Fatal]

NARRATIVE: CASE EVENT DATE: 20200305
